FAERS Safety Report 8245607-9 (Version None)
Quarter: 2012Q1

REPORT INFORMATION
  Report Type: 
  Country: None (occurrence: None)
  Receive Date: 20120330
  Receipt Date: 20120320
  Transmission Date: 20120608
  Serious: Yes (Hospitalization)
  Sender: FDA-Public Use
  Company Number: DE-BIOGENIDEC-2012BI005490

PATIENT
  Age: 16 Year
  Sex: Male

DRUGS (2)
  1. TYSABRI [Suspect]
     Indication: RELAPSING-REMITTING MULTIPLE SCLEROSIS
     Route: 042
     Dates: start: 20081001
  2. VALDOXAN [Concomitant]
     Indication: SLEEP DISORDER
     Dates: start: 20111223

REACTIONS (2)
  - HERPES ZOSTER [None]
  - BLOOD POTASSIUM DECREASED [None]
